FAERS Safety Report 8439072 (Version 2)
Quarter: 2013Q2

REPORT INFORMATION
  Report Type: Spontaneous
  Country: US (occurrence: None)
  Receive Date: 20120104
  Receipt Date: 20120508
  Transmission Date: 20140414
  Serious: No
  Sender: FDA-Public Use
  Company Number: 2011HGS-002944

PATIENT
  Sex: Female

DRUGS (2)
  1. BENLYSTA [Suspect]
     Dosage: INTRAVENOUS DRIP
     Route: 041
  2. METHOTREXATE [Concomitant]

REACTIONS (2)
  - HEADACHE [None]
  - PLATELET COUNT DECREASED [None]
